FAERS Safety Report 15880366 (Version 2)
Quarter: 2019Q1

REPORT INFORMATION
  Report Type: Spontaneous
  Country: US (occurrence: US)
  Receive Date: 20190128
  Receipt Date: 20190130
  Transmission Date: 20190417
  Serious: Yes (Other)
  Sender: FDA-Public Use
  Company Number: US-PFIZER INC-2019027454

PATIENT
  Age: 75 Year
  Sex: Female
  Weight: 95.71 kg

DRUGS (4)
  1. EXEMESTANE. [Suspect]
     Active Substance: EXEMESTANE
     Indication: OESTROGEN RECEPTOR POSITIVE BREAST CANCER
     Dosage: 25 MG, DAILY (TWO WEEKS)
     Dates: end: 201812
  2. VITAMIN D [Concomitant]
     Active Substance: CHOLECALCIFEROL
     Indication: MENOPAUSAL SYMPTOMS
     Dosage: 3000 IU, DAILY
     Route: 048
     Dates: start: 201712
  3. ANASTROZOLE. [Concomitant]
     Active Substance: ANASTROZOLE
     Indication: AROMATASE INHIBITION THERAPY
     Dosage: 1 MG, DAILY
     Route: 048
     Dates: start: 201711, end: 201808
  4. TYLENOL [Concomitant]
     Active Substance: ACETAMINOPHEN
     Indication: SPORTS INJURY
     Dosage: 500 MG, UNK

REACTIONS (7)
  - Visual impairment [Recovered/Resolved]
  - Retinal toxicity [Unknown]
  - Vitreous floaters [Unknown]
  - Retinal haemorrhage [Unknown]
  - Cataract nuclear [Unknown]
  - Vision blurred [Recovered/Resolved]
  - Photopsia [Unknown]

NARRATIVE: CASE EVENT DATE: 20181129
